FAERS Safety Report 16153533 (Version 8)
Quarter: 2025Q3

REPORT INFORMATION
  Report Type: Spontaneous
  Country: EU (occurrence: EU)
  Receive Date: 20190403
  Receipt Date: 20250812
  Transmission Date: 20251021
  Serious: Yes (Hospitalization, Other)
  Sender: AUROBINDO
  Company Number: EU-AUROBINDO-AUR-APL-2019-017242

PATIENT
  Age: 67 Year
  Sex: Female

DRUGS (20)
  1. ZOLPIDEM [Interacting]
     Active Substance: ZOLPIDEM TARTRATE
     Indication: Sleep disorder
     Dosage: 40 MILLIGRAM, ONCE A DAY
     Route: 065
  2. ZOLPIDEM [Interacting]
     Active Substance: ZOLPIDEM TARTRATE
     Indication: Initial insomnia
     Dosage: 10 MILLIGRAM, ONCE A DAY (AT BEDTIME )
     Route: 065
  3. ZOLPIDEM [Interacting]
     Active Substance: ZOLPIDEM TARTRATE
     Route: 065
  4. ZOLPIDEM [Interacting]
     Active Substance: ZOLPIDEM TARTRATE
     Route: 065
  5. MELATONIN [Interacting]
     Active Substance: MELATONIN
     Indication: Insomnia
     Dosage: 5 MILLIGRAM, ONCE A DAY AT 10 PM
     Route: 065
  6. TICAGRELOR [Interacting]
     Active Substance: TICAGRELOR
     Indication: Acute coronary syndrome
     Dosage: 180 MILLIGRAM, ONCE A DAY
     Route: 065
  7. TICAGRELOR [Interacting]
     Active Substance: TICAGRELOR
     Indication: Acute myocardial infarction
     Dosage: 180 MILLIGRAM, ONCE A DAY
     Route: 048
  8. TICAGRELOR [Interacting]
     Active Substance: TICAGRELOR
     Indication: Stent placement
  9. HYDROXYZINE [Suspect]
     Active Substance: HYDROXYZINE HYDROCHLORIDE
     Indication: Product used for unknown indication
     Route: 065
  10. PERAZINE [Suspect]
     Active Substance: PERAZINE
     Indication: Product used for unknown indication
     Dosage: 200 MILLIGRAM, ONCE A DAY
     Route: 065
  11. ASPIRIN [Suspect]
     Active Substance: ASPIRIN
     Indication: Acute coronary syndrome
     Dosage: 100 MILLIGRAM, ONCE A DAY
     Route: 065
  12. ASPIRIN [Suspect]
     Active Substance: ASPIRIN
     Indication: Stent placement
  13. ASPIRIN [Suspect]
     Active Substance: ASPIRIN
     Indication: Acute myocardial infarction
  14. ZOFENOPRIL [Suspect]
     Active Substance: ZOFENOPRIL
     Indication: Acute myocardial infarction
     Route: 065
  15. ZOFENOPRIL [Suspect]
     Active Substance: ZOFENOPRIL
     Indication: Stent placement
     Dosage: 8 MILLIGRAM, ONCE A DAY
     Route: 065
  16. ZOFENOPRIL [Suspect]
     Active Substance: ZOFENOPRIL
     Indication: Acute coronary syndrome
  17. EPLERENONE [Suspect]
     Active Substance: EPLERENONE
     Indication: Acute coronary syndrome
     Dosage: 50 MILLIGRAM, ONCE A DAY
     Route: 065
  18. EPLERENONE [Suspect]
     Active Substance: EPLERENONE
     Indication: Stent placement
  19. EPLERENONE [Suspect]
     Active Substance: EPLERENONE
     Indication: Acute myocardial infarction
  20. ASPIRIN [Concomitant]
     Active Substance: ASPIRIN
     Indication: Product used for unknown indication
     Route: 065

REACTIONS (16)
  - Chest pain [Unknown]
  - Hypoaesthesia [Unknown]
  - Vascular stent thrombosis [Unknown]
  - Memory impairment [Recovered/Resolved]
  - Drug interaction [Recovered/Resolved]
  - Angina pectoris [Unknown]
  - Attention deficit hyperactivity disorder [Unknown]
  - Tachyphylaxis [Unknown]
  - Intentional product misuse [Unknown]
  - Therapeutic product effect decreased [Unknown]
  - Drug ineffective [Unknown]
  - Drug abuse [Unknown]
  - Sleep disorder [Unknown]
  - Disturbance in attention [Recovered/Resolved]
  - Incorrect dose administered [Unknown]
  - Overdose [Unknown]
